FAERS Safety Report 9636221 (Version 3)
Quarter: 2013Q4

REPORT INFORMATION
  Report Type: Report from Study
  Country: JP (occurrence: JP)
  Receive Date: 20131021
  Receipt Date: 20131025
  Transmission Date: 20140711
  Serious: Yes (Death, Life-Threatening, Hospitalization, Other)
  Sender: FDA-Public Use
  Company Number: JP-BRISTOL-MYERS SQUIBB COMPANY-19502350

PATIENT
  Age: 59 Year
  Sex: Male
  Weight: 61 kg

DRUGS (8)
  1. TAXOL [Suspect]
     Indication: GASTRIC CANCER
     Dosage: 133 MG/BODY (250.0 ML AT 250.0 ML/HR)?ON DAY (19-AUG,2-SEP,9-SEP,18-SEP-13)1,8,15,DAY 22,28 DAYS
     Route: 041
     Dates: start: 20130610, end: 20130918
  2. FERROMIA [Concomitant]
     Indication: IRON DEFICIENCY ANAEMIA
     Dosage: TABS
     Route: 048
     Dates: start: 20130701, end: 20130918
  3. TAKEPRON [Concomitant]
     Indication: GASTRIC CANCER
     Dosage: TABS
     Route: 048
     Dates: start: 20130617
  4. LOXOPROFEN [Concomitant]
     Indication: CANCER PAIN
     Dosage: TABS
     Route: 048
     Dates: start: 20130617
  5. MUCOSTA [Concomitant]
     Indication: GASTRITIS PROPHYLAXIS
     Dosage: TABS
     Route: 048
     Dates: start: 20130704
  6. WARFARIN [Concomitant]
     Indication: THROMBOSIS
     Route: 048
     Dates: start: 20130730
  7. LASIX [Concomitant]
     Indication: PLEURAL EFFUSION
     Route: 048
     Dates: start: 20130819
  8. ALDACTONE [Concomitant]
     Indication: PLEURAL EFFUSION
     Route: 048
     Dates: start: 20130819

REACTIONS (4)
  - Death [Fatal]
  - Respiratory failure [Unknown]
  - Pleural effusion [Unknown]
  - Interstitial lung disease [Unknown]
